FAERS Safety Report 9276289 (Version 3)
Quarter: 2013Q4

REPORT INFORMATION
  Report Type: Report from Study
  Country: US (occurrence: US)
  Receive Date: 20130507
  Receipt Date: 20131211
  Transmission Date: 20140711
  Serious: Yes (Other)
  Sender: FDA-Public Use
  Company Number: PHEH2013US010012

PATIENT
  Age: 46 Year
  Sex: Female

DRUGS (12)
  1. GLEEVEC [Suspect]
     Indication: CHRONIC MYELOID LEUKAEMIA
     Dosage: 400 MG, DAILY
     Route: 048
     Dates: start: 20120807
  2. HYDROCHLOROTHIAZIDE [Concomitant]
     Dosage: UNK UKN, UNK
  3. DOCUSATE [Concomitant]
     Dosage: UNK UKN, UNK
  4. ISOSORBIDE [Concomitant]
     Dosage: UNK UKN, UNK
  5. LIPITOR [Concomitant]
     Dosage: UNK UKN, UNK
  6. NITROGLYCERIN [Concomitant]
     Dosage: UNK UKN, UNK
  7. METOPROLOL [Concomitant]
     Dosage: UNK UKN, UNK
  8. BACLOFEN [Concomitant]
     Dosage: UNK UKN, UNK
  9. SPIRIVA [Concomitant]
     Dosage: UNK UKN, UNK
  10. PERCOCET [Concomitant]
     Dosage: UNK UKN, UNK
  11. TOPAMAX [Concomitant]
     Dosage: UNK UKN, UNK
  12. XANAX [Concomitant]
     Dosage: UNK UKN, UNK

REACTIONS (9)
  - Type 2 diabetes mellitus [Unknown]
  - Swelling face [Unknown]
  - Local swelling [Unknown]
  - Muscle spasms [Unknown]
  - Blood potassium decreased [Unknown]
  - Myalgia [Not Recovered/Not Resolved]
  - Arthralgia [Not Recovered/Not Resolved]
  - Nausea [Not Recovered/Not Resolved]
  - Swelling [Not Recovered/Not Resolved]
